FAERS Safety Report 24331164 (Version 1)
Quarter: 2024Q3

REPORT INFORMATION
  Report Type: Report from Study
  Country: BR (occurrence: BR)
  Receive Date: 20240918
  Receipt Date: 20240918
  Transmission Date: 20241017
  Serious: Yes (Hospitalization)
  Sender: ABBVIE
  Company Number: BR-JNJFOC-20240932945

PATIENT
  Age: 70 Year
  Sex: Male

DRUGS (2)
  1. IBRUTINIB [Suspect]
     Active Substance: IBRUTINIB
     Indication: Lymphadenopathy
     Route: 048
     Dates: start: 20150731
  2. FCR [Concomitant]
     Indication: Chronic lymphocytic leukaemia
     Dates: start: 20141107

REACTIONS (1)
  - Bullous erysipelas [Unknown]

NARRATIVE: CASE EVENT DATE: 20180130
